FAERS Safety Report 6641442-3 (Version None)
Quarter: 2010Q1

REPORT INFORMATION
  Report Type: 
  Country: None (occurrence: None)
  Receive Date: 20100318
  Receipt Date: 20100312
  Transmission Date: 20100710
  Serious: Yes (Death, Hospitalization, Other)
  Sender: FDA-Public Use
  Company Number: CH-ROCHE-675972

PATIENT
  Sex: Female
  Weight: 55 kg

DRUGS (13)
  1. TAMIFLU [Suspect]
     Indication: INFLUENZA
     Dosage: RECEIVED FOR 2 DAYS
     Route: 048
     Dates: start: 20091214, end: 20091217
  2. TAMIFLU [Suspect]
     Route: 048
     Dates: end: 20091219
  3. TAMIFLU [Suspect]
     Dosage: DOSE REDUCED, RECEIVED FOR 1 DAY
     Route: 048
     Dates: start: 20091201, end: 20100103
  4. SOLU-MEDROL [Concomitant]
     Dates: start: 20091227, end: 20100101
  5. PREDNISONE [Concomitant]
     Indication: IDIOPATHIC PULMONARY FIBROSIS
     Dosage: OTHER INDICATION: RHEUMATOID ARTHRITIS
  6. AZATHIOPRINE [Concomitant]
     Indication: IDIOPATHIC PULMONARY FIBROSIS
     Dosage: OTHER INDICATION: RHEUMATOID ARTHRITIS
  7. TAVANIC [Concomitant]
     Dates: start: 20091212, end: 20091214
  8. VANCOMYCIN [Concomitant]
     Dosage: DRUG NAME REPORTED AS VANCOMICINE
     Dates: start: 20091223, end: 20091230
  9. ILOMEDIN [Concomitant]
     Dates: start: 20091227, end: 20100104
  10. ACYCLOVIR [Concomitant]
     Dates: start: 20091228
  11. NORADRENALINE [Concomitant]
  12. PROPOFOL [Concomitant]
  13. DORMICUM [Concomitant]

REACTIONS (6)
  - ACUTE RESPIRATORY DISTRESS SYNDROME [None]
  - AGRANULOCYTOSIS [None]
  - NEUTROPENIA [None]
  - RENAL FAILURE [None]
  - THROMBOCYTOPENIA [None]
  - THROMBOTIC THROMBOCYTOPENIC PURPURA [None]
